FAERS Safety Report 5119269-3 (Version None)
Quarter: 2006Q3

REPORT INFORMATION
  Report Type: 
  Country: None (occurrence: None)
  Receive Date: 20060929
  Receipt Date: 20060925
  Transmission Date: 20061208
  Serious: Yes (Other)
  Sender: FDA-Public Use
  Company Number: S06-USA-03860-01

PATIENT
  Age: 73 Year
  Sex: Male

DRUGS (3)
  1. LEXAPRO [Suspect]
     Indication: DEPRESSION
     Dosage: 10 MG QD PO
     Route: 048
     Dates: start: 20060410, end: 20060901
  2. LUNESTA [Concomitant]
  3. IMDUR [Concomitant]

REACTIONS (1)
  - PRIAPISM [None]
